FAERS Safety Report 4354138-8 (Version None)
Quarter: 2004Q2

REPORT INFORMATION
  Report Type: 
  Country: None (occurrence: None)
  Receive Date: 20040506
  Receipt Date: 20040506
  Transmission Date: 20050107
  Serious: Yes (Life-Threatening)
  Sender: FDA-Public Use
  Company Number: None

PATIENT
  Sex: Male
  Weight: 85.8 kg

DRUGS (1)
  1. TAXUS [Suspect]

REACTIONS (4)
  - CARDIAC TAMPONADE [None]
  - CORONARY ARTERY PERFORATION [None]
  - IATROGENIC INJURY [None]
  - MEDICAL DEVICE COMPLICATION [None]
